FAERS Safety Report 17201014 (Version 1)
Quarter: 2019Q4

REPORT INFORMATION
  Report Type: Spontaneous
  Country: LU (occurrence: LU)
  Receive Date: 20191226
  Receipt Date: 20191226
  Transmission Date: 20200122
  Serious: Yes (Life-Threatening, Other)
  Sender: FDA-Public Use
  Company Number: LU-GLAXOSMITHKLINE-LU2019233035

PATIENT
  Age: 33 Year
  Sex: Male

DRUGS (5)
  1. SIMVASTATINE [Concomitant]
     Active Substance: SIMVASTATIN
     Indication: DYSLIPIDAEMIA
     Dosage: 20 MG, QD
     Route: 065
  2. ULTIVA [Suspect]
     Active Substance: REMIFENTANIL HYDROCHLORIDE
     Indication: GENERAL ANAESTHESIA
     Dosage: 10 ?G, 1 DOSAGE TOTAL
     Route: 042
     Dates: start: 20191118, end: 20191118
  3. PROPOFOL FRESENIUS [Concomitant]
     Active Substance: PROPOFOL
     Indication: GENERAL ANAESTHESIA
     Dosage: 1.17 MG,  1 DOSAGE TOTAL (XYLOCAINE 1 POUR CENT (50 MG/5 ML), SOLUTION)
     Route: 042
     Dates: start: 20191118, end: 20191118
  4. CEFUROXIME. [Suspect]
     Active Substance: CEFUROXIME
     Indication: PROPHYLAXIS
     Dosage: 1500 MG, 1 DOSAGE TOTAL
     Route: 042
     Dates: start: 20191118, end: 20191118
  5. XYLOCAINE [Concomitant]
     Active Substance: LIDOCAINE HYDROCHLORIDE
     Indication: GENERAL ANAESTHESIA
     Dosage: 1.17 MG, 1 DOSAGE TOTAL
     Route: 042
     Dates: start: 20191118, end: 20191118

REACTIONS (1)
  - Anaphylactic shock [Not Recovered/Not Resolved]

NARRATIVE: CASE EVENT DATE: 20191118
